FAERS Safety Report 9115101 (Version 1)
Quarter: 2013Q1

REPORT INFORMATION
  Report Type: Spontaneous
  Country: US (occurrence: None)
  Receive Date: 20130220
  Receipt Date: 20130220
  Transmission Date: 20140127
  Serious: Yes (Hospitalization)
  Sender: FDA-Public Use
  Company Number: None

PATIENT
  Age: 48 Year
  Sex: Female

DRUGS (2)
  1. CARBAMAZEPINE [Suspect]
     Route: 042
     Dates: start: 20121004, end: 20121108
  2. NEFAZODONE [Suspect]
     Route: 048
     Dates: start: 20080620, end: 20121108

REACTIONS (1)
  - Hepatitis [None]
